FAERS Safety Report 5145424-2 (Version None)
Quarter: 2006Q4

REPORT INFORMATION
  Report Type: 
  Country: None (occurrence: None)
  Receive Date: 20061101
  Receipt Date: 20061011
  Transmission Date: 20070319
  Serious: Yes (Hospitalization)
  Sender: FDA-Public Use
  Company Number: ZA200610002046

PATIENT
  Age: 74 Year
  Sex: Female

DRUGS (2)
  1. CYMBALTA [Suspect]
     Indication: MAJOR DEPRESSION
     Dosage: DAILY (1/D), ORAL
     Route: 048
     Dates: start: 20060101
  2. LANTANON (MIANSERIN HYDROCHLORIDE) [Concomitant]

REACTIONS (2)
  - DISEASE RECURRENCE [None]
  - GUILLAIN-BARRE SYNDROME [None]
